FAERS Safety Report 14224426 (Version 6)
Quarter: 2017Q4

REPORT INFORMATION
  Report Type: Report from Study
  Country: US (occurrence: US)
  Receive Date: 20171127
  Receipt Date: 20171220
  Transmission Date: 20180321
  Serious: Yes (Other)
  Sender: FDA-Public Use
  Company Number: PHEH2017US038050

PATIENT
  Age: 86 Year
  Sex: Female

DRUGS (1)
  1. SIMBRINZA [Suspect]
     Active Substance: BRIMONIDINE TARTRATE\BRINZOLAMIDE
     Indication: PRODUCT USED FOR UNKNOWN INDICATION
     Dosage: TID
     Route: 065
     Dates: start: 20171115, end: 20171130

REACTIONS (3)
  - Drug intolerance [Unknown]
  - Conjunctivitis [Recovering/Resolving]
  - Intraocular pressure decreased [Unknown]

NARRATIVE: CASE EVENT DATE: 20171130
